FAERS Safety Report 10569699 (Version 2)
Quarter: 2014Q4

REPORT INFORMATION
  Report Type: Spontaneous
  Country: DE (occurrence: DE)
  Receive Date: 20141107
  Receipt Date: 20141203
  Transmission Date: 20150529
  Serious: Yes (Other)
  Sender: FDA-Public Use
  Company Number: DE-JNJFOC-20141017630

PATIENT
  Age: 70 Year
  Sex: Female

DRUGS (4)
  1. ISOGLAUCON [Concomitant]
  2. IMODIUM [Suspect]
     Active Substance: LOPERAMIDE HYDROCHLORIDE
     Route: 048
  3. IMODIUM [Suspect]
     Active Substance: LOPERAMIDE HYDROCHLORIDE
     Indication: DIARRHOEA
     Dosage: THE PATIENT TOOK IMODIUM 1-2 TIMES WEEKLY 1-2 CAPSULES/DAY SINCE 15 YEARS.
     Route: 048
  4. THYRONAJOD [Concomitant]
     Active Substance: LEVOTHYROXINE SODIUM\POTASSIUM IODIDE
     Indication: THYROID DISORDER
     Dosage: SINCE YEARS
     Route: 065

REACTIONS (1)
  - Intraocular pressure increased [Not Recovered/Not Resolved]
